FAERS Safety Report 7784303-9 (Version None)
Quarter: 2011Q3

REPORT INFORMATION
  Report Type: 
  Country: None (occurrence: None)
  Receive Date: 20110928
  Receipt Date: 20110916
  Transmission Date: 20111222
  Serious: Yes (Other)
  Sender: FDA-Public Use
  Company Number: PHHY2011DE51253

PATIENT
  Sex: Female

DRUGS (2)
  1. GILENYA [Suspect]
     Indication: MULTIPLE SCLEROSIS
     Dosage: 0.5 MG, QD
     Route: 048
     Dates: start: 20110203
  2. CONTRACEPTIVES [Concomitant]
     Dosage: UNK UKN, UNK
     Route: 048

REACTIONS (2)
  - CATARACT [None]
  - LENTICULAR OPACITIES [None]
